FAERS Safety Report 16580879 (Version 10)
Quarter: 2020Q1

REPORT INFORMATION
  Report Type: Spontaneous
  Country: US (occurrence: US)
  Receive Date: 20190716
  Receipt Date: 20200214
  Transmission Date: 20200409
  Serious: No
  Sender: FDA-Public Use
  Company Number: US-PFIZER INC-2019298762

PATIENT
  Age: 45 Year
  Sex: Male

DRUGS (4)
  1. XELJANZ XR [Suspect]
     Active Substance: TOFACITINIB CITRATE
     Dosage: 11 MG, DAILY
     Route: 048
     Dates: start: 20190613
  2. XELJANZ XR [Suspect]
     Active Substance: TOFACITINIB CITRATE
     Indication: RHEUMATOID ARTHRITIS
     Dosage: 11 MG, DAILY
     Route: 048
     Dates: start: 20190513
  3. PAXIL [PIROXICAM] [Concomitant]
     Active Substance: PIROXICAM
     Indication: ANXIETY
     Dosage: 30 MG, 1X/DAY ( IN AM)
     Dates: start: 201808
  4. PAXIL [PIROXICAM] [Concomitant]
     Active Substance: PIROXICAM
     Dosage: 30 MG, 1X/DAY (30 MG IN AM)
     Dates: start: 201908

REACTIONS (10)
  - Rhinorrhoea [Unknown]
  - Pain in extremity [Unknown]
  - Seasonal allergy [Unknown]
  - Tooth disorder [Unknown]
  - Therapeutic product effect variable [Unknown]
  - Headache [Not Recovered/Not Resolved]
  - Productive cough [Unknown]
  - Paranoia [Unknown]
  - Hypertension [Unknown]
  - Neuralgia [Unknown]

NARRATIVE: CASE EVENT DATE: 2019
